FAERS Safety Report 13759296 (Version 1)
Quarter: 2017Q3

REPORT INFORMATION
  Report Type: Spontaneous
  Country: US (occurrence: US)
  Receive Date: 20170717
  Receipt Date: 20170717
  Transmission Date: 20171127
  Serious: Yes (Hospitalization)
  Sender: FDA-Public Use
  Company Number: None

PATIENT
  Age: 92 Year
  Sex: Male
  Weight: 59.01 kg

DRUGS (2)
  1. CETIRIZINE [Suspect]
     Active Substance: CETIRIZINE HYDROCHLORIDE
     Indication: URINARY RETENTION
     Route: 048
     Dates: start: 20170531, end: 20170703
  2. CETIRIZINE [Suspect]
     Active Substance: CETIRIZINE HYDROCHLORIDE
     Indication: CONFUSIONAL STATE
     Route: 048
     Dates: start: 20170531, end: 20170703

REACTIONS (1)
  - Urinary retention [None]

NARRATIVE: CASE EVENT DATE: 20170703
